FAERS Safety Report 21488382 (Version 1)
Quarter: 2022Q4

REPORT INFORMATION
  Report Type: Spontaneous
  Country: US (occurrence: US)
  Receive Date: 20221021
  Receipt Date: 20221021
  Transmission Date: 20230113
  Serious: Yes (Hospitalization, Other)
  Sender: FDA-Public Use
  Company Number: US-Accord-281913

PATIENT
  Age: 41 Year
  Sex: Female

DRUGS (1)
  1. HYDROXYCHLOROQUINE [Suspect]
     Active Substance: HYDROXYCHLOROQUINE
     Indication: Systemic lupus erythematosus
     Dosage: 3.9 MG/KG/ DAY

REACTIONS (7)
  - Cardiomyopathy [Recovered/Resolved]
  - Thrombotic microangiopathy [Unknown]
  - Electrocardiogram QT prolonged [Unknown]
  - Pericardial effusion [Unknown]
  - Ventricular hypertrophy [Unknown]
  - Ejection fraction [Recovered/Resolved]
  - Condition aggravated [Recovered/Resolved]
